FAERS Safety Report 10083610 (Version 1)
Quarter: 2014Q2

REPORT INFORMATION
  Report Type: Spontaneous
  Country: US (occurrence: None)
  Receive Date: 20140416
  Receipt Date: 20140416
  Transmission Date: 20141212
  Serious: No
  Sender: FDA-Public Use
  Company Number: None

PATIENT
  Age: 57 Year
  Sex: Female
  Weight: 106.6 kg

DRUGS (12)
  1. DOXYCYCLINE [Suspect]
     Indication: VIRAL INFECTION
     Dosage: 500 MG, 60 2 ADAY, ORAL
     Route: 048
     Dates: start: 201410
  2. DOXYCYCLINE [Suspect]
     Indication: VOMITING
     Dosage: 500 MG, 60 2 ADAY, ORAL
     Route: 048
     Dates: start: 201410
  3. METFORMIN [Concomitant]
  4. GLYBURIDE [Concomitant]
  5. VICTOZA [Concomitant]
  6. NORCO [Concomitant]
  7. ZANAX [Concomitant]
  8. TIZANIDINE [Concomitant]
  9. PRAMIPEXOLE [Concomitant]
  10. LISINOPRIL [Concomitant]
  11. IBUPROFEN [Concomitant]
  12. TOVIAZ [Concomitant]

REACTIONS (4)
  - Anosmia [None]
  - Ageusia [None]
  - Nerve injury [None]
  - Weight decreased [None]
